FAERS Safety Report 19785795 (Version 2)
Quarter: 2021Q3

REPORT INFORMATION
  Report Type: Spontaneous
  Country: US (occurrence: US)
  Receive Date: 20210903
  Receipt Date: 20210917
  Transmission Date: 20211014
  Serious: No
  Sender: FDA-Public Use
  Company Number: US-DRREDDYS-SPO/USA/21/0139498

PATIENT
  Age: 45 Year
  Sex: Female

DRUGS (1)
  1. ZIPRASIDONE. [Suspect]
     Active Substance: ZIPRASIDONE
     Indication: MAST CELL ACTIVATION SYNDROME

REACTIONS (4)
  - Abdominal pain upper [Unknown]
  - Adverse event [Unknown]
  - Malaise [Unknown]
  - Drug intolerance [Unknown]
